FAERS Safety Report 23476682 (Version 1)
Quarter: 2024Q1

REPORT INFORMATION
  Report Type: Report from Study
  Country: US (occurrence: US)
  Receive Date: 20240204
  Receipt Date: 20240204
  Transmission Date: 20240409
  Serious: No
  Sender: FDA-Public Use
  Company Number: US-EXELIXIS-CABO-23063865

PATIENT
  Age: 73 Year
  Sex: Female

DRUGS (14)
  1. COMETRIQ [Suspect]
     Active Substance: CABOZANTINIB S-MALATE
     Indication: Thyroid cancer
     Dosage: 140 MG (1 X 80 + 3 X 20 MG) QD
     Route: 048
     Dates: start: 20230505
  2. ASPIRIN [Concomitant]
     Active Substance: ASPIRIN
  3. CARTEOLOL [Concomitant]
     Active Substance: CARTEOLOL
  4. LATANOPROST [Concomitant]
     Active Substance: LATANOPROST
  5. CARVEDILOL [Concomitant]
     Active Substance: CARVEDILOL
  6. VITAMINS [Concomitant]
     Active Substance: VITAMINS
  7. LOSARTAN [Concomitant]
     Active Substance: LOSARTAN
  8. LETROZOLE [Concomitant]
     Active Substance: LETROZOLE
  9. FUROSEMIDE [Concomitant]
     Active Substance: FUROSEMIDE
  10. LEVOTHYROXINE [Concomitant]
     Active Substance: LEVOTHYROXINE\LEVOTHYROXINE SODIUM
  11. ONDANSETRON [Concomitant]
     Active Substance: ONDANSETRON
  12. OMEPRAZOLE [Concomitant]
     Active Substance: OMEPRAZOLE
  13. VITAMIN D3 [Concomitant]
     Active Substance: CHOLECALCIFEROL
  14. ZYRTEC [Concomitant]
     Active Substance: CETIRIZINE HYDROCHLORIDE

REACTIONS (4)
  - Lethargy [Unknown]
  - Blood pressure increased [Recovering/Resolving]
  - Nausea [Unknown]
  - Diarrhoea [Unknown]

NARRATIVE: CASE EVENT DATE: 20230501
